FAERS Safety Report 19088183 (Version 13)
Quarter: 2022Q3

REPORT INFORMATION
  Report Type: Report from Study
  Country: DE (occurrence: DE)
  Receive Date: 20210402
  Receipt Date: 20220802
  Transmission Date: 20221027
  Serious: Yes (Death, Other)
  Sender: FDA-Public Use
  Company Number: DE-GLAXOSMITHKLINE-DE2021GSK071857

PATIENT

DRUGS (1)
  1. BELIMUMAB [Suspect]
     Active Substance: BELIMUMAB
     Indication: Systemic lupus erythematosus
     Dosage: 10 MG/KG, CYC(EVERY 4 WEEKS)
     Route: 042
     Dates: start: 20180224, end: 20180309

REACTIONS (1)
  - Acute right ventricular failure [Fatal]

NARRATIVE: CASE EVENT DATE: 20180224
